FAERS Safety Report 15530252 (Version 3)
Quarter: 2018Q4

REPORT INFORMATION
  Report Type: Spontaneous
  Country: JP (occurrence: JP)
  Receive Date: 20181018
  Receipt Date: 20181219
  Transmission Date: 20190205
  Serious: Yes (Death, Other)
  Sender: FDA-Public Use
  Company Number: JP-BRISTOL-MYERS SQUIBB COMPANY-BMS-2018-097787

PATIENT
  Age: 71 Year
  Sex: Male

DRUGS (1)
  1. OPDIVO [Suspect]
     Active Substance: NIVOLUMAB
     Indication: PLEURAL MESOTHELIOMA MALIGNANT
     Dosage: 240 MG, UNK
     Route: 041
     Dates: start: 20181002

REACTIONS (3)
  - Loss of consciousness [Fatal]
  - Product use in unapproved indication [Unknown]
  - Cardio-respiratory arrest [Fatal]
